FAERS Safety Report 5916785-9 (Version None)
Quarter: 2008Q4

REPORT INFORMATION
  Report Type: 
  Country: None (occurrence: None)
  Receive Date: 20081013
  Receipt Date: 20081002
  Transmission Date: 20090506
  Serious: Yes (Disabling, Other)
  Sender: FDA-Public Use
  Company Number: US-PFIZER INC-2008074865

PATIENT
  Sex: Female
  Weight: 109 kg

DRUGS (4)
  1. GEODON [Suspect]
     Indication: OBSESSIVE THOUGHTS
     Dates: end: 20070701
  2. ROZEREM [Suspect]
     Indication: INSOMNIA
     Dates: start: 20080101, end: 20080101
  3. CYMBALTA [Concomitant]
  4. SPIRONOLACTONE [Concomitant]
     Indication: BLOOD PRESSURE FLUCTUATION

REACTIONS (3)
  - FALL [None]
  - GAIT DISTURBANCE [None]
  - SEDATION [None]
